FAERS Safety Report 8574492-0 (Version None)
Quarter: 2012Q3

REPORT INFORMATION
  Report Type: 
  Country: None (occurrence: None)
  Receive Date: 20120806
  Receipt Date: 20120611
  Transmission Date: 20120928
  Serious: No
  Sender: FDA-Public Use
  Company Number: US-ABBOTT-12P-163-0944722-00

PATIENT
  Age: 55 Year
  Sex: Female

DRUGS (2)
  1. DEPAKOTE ER [Suspect]
     Dates: end: 20120301
  2. DEPAKOTE ER [Suspect]
     Indication: PRODUCT USED FOR UNKNOWN INDICATION
     Route: 048
     Dates: start: 20120301

REACTIONS (1)
  - HEPATIC ENZYME INCREASED [None]
